FAERS Safety Report 4676454-2 (Version None)
Quarter: 2005Q2

REPORT INFORMATION
  Report Type: 
  Country: None (occurrence: None)
  Receive Date: 20050527
  Receipt Date: 20050512
  Transmission Date: 20051028
  Serious: Yes (Life-Threatening, Hospitalization, Disabling, Other)
  Sender: FDA-Public Use
  Company Number: US-GLAXOSMITHKLINE-A0558365B

PATIENT
  Age: 47 Year
  Sex: Male

DRUGS (4)
  1. ASPIRIN [Suspect]
     Route: 048
  2. ALCOHOL [Concomitant]
  3. CRACK COCAINE [Concomitant]
  4. LAMICTAL [Concomitant]
     Indication: BIPOLAR DISORDER
     Route: 048

REACTIONS (3)
  - INTENTIONAL MISUSE [None]
  - RASH [None]
  - RENAL FAILURE ACUTE [None]
